FAERS Safety Report 7528834-5 (Version None)
Quarter: 2011Q2

REPORT INFORMATION
  Report Type: 
  Country: None (occurrence: None)
  Receive Date: 20110607
  Receipt Date: 20100506
  Transmission Date: 20111010
  Serious: No
  Sender: FDA-Public Use
  Company Number: US-ASTRAZENECA-2010SE21962

PATIENT
  Sex: Female

DRUGS (3)
  1. PRILOSEC OTC [Suspect]
     Route: 048
     Dates: start: 20100430
  2. CELEXA [Concomitant]
     Dosage: UNKNOWN
  3. PRILOSEC OTC [Suspect]
     Indication: GASTRIC ULCER
     Route: 048

REACTIONS (2)
  - INAPPROPRIATE SCHEDULE OF DRUG ADMINISTRATION [None]
  - ABDOMINAL DISCOMFORT [None]
